FAERS Safety Report 8000499-8 (Version None)
Quarter: 2011Q4

REPORT INFORMATION
  Report Type: 
  Country: None (occurrence: None)
  Receive Date: 20111222
  Receipt Date: 20111216
  Transmission Date: 20120403
  Serious: Yes (Other)
  Sender: FDA-Public Use
  Company Number: JP-JNJFOC-20111208306

PATIENT
  Sex: Female

DRUGS (2)
  1. TOPOTECAN [Suspect]
     Indication: OVARIAN CANCER
     Route: 041
  2. DOXORUBICIN HCL [Suspect]
     Indication: OVARIAN CANCER
     Route: 042

REACTIONS (1)
  - PULMONARY ALVEOLAR HAEMORRHAGE [None]
